FAERS Safety Report 17207106 (Version 1)
Quarter: 2019Q4

REPORT INFORMATION
  Report Type: Spontaneous
  Country: SE (occurrence: SE)
  Receive Date: 20191227
  Receipt Date: 20191227
  Transmission Date: 20200122
  Serious: Yes (Hospitalization)
  Sender: FDA-Public Use
  Company Number: SE-MYLANLABS-2019M1129330

PATIENT
  Age: 48 Year
  Sex: Female

DRUGS (1)
  1. LERGIGAN (PROMETHAZINE) [Suspect]
     Active Substance: PROMETHAZINE HYDROCHLORIDE
     Indication: PRODUCT USED FOR UNKNOWN INDICATION
     Dosage: N?GRA DAGAR TIDIGARE H?MTAT UT 100 ST ^DET SAKNAS 75 ST^
     Route: 048
     Dates: start: 20181119, end: 20181119

REACTIONS (10)
  - Incoherent [Unknown]
  - Tremor [Unknown]
  - Hypertension [Unknown]
  - Suicide attempt [Unknown]
  - Intentional overdose [Unknown]
  - Confusional state [Unknown]
  - Dysarthria [Unknown]
  - Akathisia [Unknown]
  - Tachycardia [Unknown]
  - Hallucination [Unknown]

NARRATIVE: CASE EVENT DATE: 20181119
